FAERS Safety Report 13081092 (Version 1)
Quarter: 2017Q1

REPORT INFORMATION
  Report Type: Spontaneous
  Country: US (occurrence: US)
  Receive Date: 20170103
  Receipt Date: 20170103
  Transmission Date: 20170428
  Serious: Yes (Other)
  Sender: FDA-Public Use
  Company Number: US-PFIZER INC-2016602723

PATIENT
  Sex: Male

DRUGS (1)
  1. PROPANOLOL HCL [Suspect]
     Active Substance: PROPRANOLOL HYDROCHLORIDE

REACTIONS (2)
  - Chest discomfort [Unknown]
  - Blood pressure decreased [Unknown]
